FAERS Safety Report 10553990 (Version 1)
Quarter: 2014Q4

REPORT INFORMATION
  Report Type: Spontaneous
  Country: US (occurrence: None)
  Receive Date: 20141028
  Receipt Date: 20141028
  Transmission Date: 20150529
  Serious: Yes (Other)
  Sender: FDA-Public Use
  Company Number: HA13-415-AE

PATIENT
  Age: 60 Year
  Sex: Female
  Weight: 70.31 kg

DRUGS (6)
  1. EFFEXOR [Concomitant]
     Active Substance: VENLAFAXINE HYDROCHLORIDE
  2. VITAMIN B COMPLEX [Concomitant]
     Active Substance: CYANOCOBALAMIN\DEXPANTHENOL\NIACINAMIDE\PYRIDOXINE HYDROCHLORIDE\RIBOFLAVIN 5^-PHOSPHATE SODIUM\THIAMINE HYDROCHLORIDE\VITAMIN B COMPLEX
  3. ESTROGEN [Concomitant]
     Active Substance: ESTRONE\SUS SCROFA OVARY
  4. GABAPENTIN CAPSULES, USP 300 MG (AMNEAL) [Suspect]
     Active Substance: GABAPENTIN
     Indication: NECK PAIN
     Dosage: 7 CAPSULES A DAY
     Route: 048
     Dates: start: 20131001
  5. GABAPENTIN CAPSULES, USP 300 MG (AMNEAL) [Suspect]
     Active Substance: GABAPENTIN
     Indication: BACK PAIN
     Dosage: 7 CAPSULES A DAY
     Route: 048
     Dates: start: 20131001
  6. VITAMINS + MINERALS [Concomitant]

REACTIONS (15)
  - Restlessness [None]
  - Psychomotor hyperactivity [None]
  - Hemiparesis [None]
  - Confusional state [None]
  - Vision blurred [None]
  - Pollakiuria [None]
  - Dizziness [None]
  - Headache [None]
  - Panic attack [None]
  - Disturbance in attention [None]
  - Amnesia [None]
  - Anxiety [None]
  - Peripheral swelling [None]
  - Weight increased [None]
  - Nausea [None]

NARRATIVE: CASE EVENT DATE: 20131001
